FAERS Safety Report 4766638-7 (Version None)
Quarter: 2005Q3

REPORT INFORMATION
  Report Type: 
  Country: None (occurrence: None)
  Receive Date: 20050908
  Receipt Date: 20050830
  Transmission Date: 20060218
  Serious: Yes (Hospitalization, Other)
  Sender: FDA-Public Use
  Company Number: 2005122453

PATIENT
  Sex: Female
  Weight: 61.2356 kg

DRUGS (4)
  1. NORVASC [Suspect]
     Indication: HYPERTENSION
     Dosage: 5 MG (5 MG, DAILY INTERVAL:  EVERY DAY)
  2. LIPITOR [Suspect]
     Indication: BLOOD CHOLESTEROL INCREASED
     Dosage: 10 MG (10 MG, DAILY INTERVAL:  EVERY DAY)
  3. SYNTHROID [Concomitant]
  4. PREVACID [Concomitant]

REACTIONS (2)
  - FALL [None]
  - HIP FRACTURE [None]
